FAERS Safety Report 5519475-X (Version None)
Quarter: 2007Q4

REPORT INFORMATION
  Report Type: 
  Country: None (occurrence: None)
  Receive Date: 20071116
  Receipt Date: 20070417
  Transmission Date: 20080405
  Serious: Yes (Death, Life-Threatening, Hospitalization)
  Sender: FDA-Public Use
  Company Number: JP-MERCK-0704USA04488

PATIENT
  Age: 45 Year
  Sex: Male
  Weight: 56 kg

DRUGS (5)
  1. CRIXIVAN [Suspect]
     Route: 065
     Dates: start: 20010827
  2. PYRIMETHAMINE [Concomitant]
     Route: 065
     Dates: start: 20010825
  3. CLINDAMYCIN [Concomitant]
     Route: 065
     Dates: start: 20010825
  4. ZIDOVUDINE [Suspect]
     Route: 065
     Dates: start: 20010827
  5. LAMIVUDINE [Suspect]
     Route: 065
     Dates: start: 20010827

REACTIONS (8)
  - ACUTE RESPIRATORY DISTRESS SYNDROME [None]
  - CEREBRAL TOXOPLASMOSIS [None]
  - DISSEMINATED INTRAVASCULAR COAGULATION [None]
  - HISTOPLASMOSIS DISSEMINATED [None]
  - PANCYTOPENIA [None]
  - PNEUMONIA [None]
  - PYREXIA [None]
  - RENAL FAILURE ACUTE [None]
